FAERS Safety Report 20225527 (Version 6)
Quarter: 2023Q2

REPORT INFORMATION
  Report Type: Report from Study
  Country: DE (occurrence: DE)
  Receive Date: 20211224
  Receipt Date: 20230620
  Transmission Date: 20230721
  Serious: Yes (Hospitalization, Other)
  Sender: FDA-Public Use
  Company Number: DE-TAKEDA-2021TUS081410

PATIENT
  Age: 69 Year
  Sex: Female

DRUGS (22)
  1. TEDUGLUTIDE [Suspect]
     Active Substance: TEDUGLUTIDE
     Indication: Short-bowel syndrome
     Dosage: 1.8 MILLIGRAM, QD
     Route: 042
     Dates: start: 20150724, end: 20190501
  2. TEDUGLUTIDE [Suspect]
     Active Substance: TEDUGLUTIDE
     Indication: Short-bowel syndrome
     Dosage: 1.8 MILLIGRAM, QD
     Route: 042
     Dates: start: 20150724, end: 20190501
  3. TEDUGLUTIDE [Suspect]
     Active Substance: TEDUGLUTIDE
     Indication: Short-bowel syndrome
     Dosage: 1.8 MILLIGRAM, QD
     Route: 042
     Dates: start: 20150724, end: 20190501
  4. TEDUGLUTIDE [Suspect]
     Active Substance: TEDUGLUTIDE
     Indication: Short-bowel syndrome
     Dosage: 1.8 MILLIGRAM, QD
     Route: 042
     Dates: start: 20150724, end: 20190501
  5. TEDUGLUTIDE [Suspect]
     Active Substance: TEDUGLUTIDE
     Dosage: 1.8 MILLIGRAM, 3/WEEK
     Route: 042
     Dates: start: 20190523, end: 20210810
  6. TEDUGLUTIDE [Suspect]
     Active Substance: TEDUGLUTIDE
     Dosage: 1.8 MILLIGRAM, 3/WEEK
     Route: 042
     Dates: start: 20190523, end: 20210810
  7. TEDUGLUTIDE [Suspect]
     Active Substance: TEDUGLUTIDE
     Dosage: 1.8 MILLIGRAM, 3/WEEK
     Route: 042
     Dates: start: 20190523, end: 20210810
  8. TEDUGLUTIDE [Suspect]
     Active Substance: TEDUGLUTIDE
     Dosage: 1.8 MILLIGRAM, 3/WEEK
     Route: 042
     Dates: start: 20190523, end: 20210810
  9. TEDUGLUTIDE [Suspect]
     Active Substance: TEDUGLUTIDE
     Dosage: 1.5 MILLIGRAM, 2/WEEK
     Route: 042
     Dates: start: 20210811
  10. TEDUGLUTIDE [Suspect]
     Active Substance: TEDUGLUTIDE
     Dosage: 1.5 MILLIGRAM, 2/WEEK
     Route: 042
     Dates: start: 20210811
  11. TEDUGLUTIDE [Suspect]
     Active Substance: TEDUGLUTIDE
     Dosage: 1.5 MILLIGRAM, 2/WEEK
     Route: 042
     Dates: start: 20210811
  12. TEDUGLUTIDE [Suspect]
     Active Substance: TEDUGLUTIDE
     Dosage: 1.5 MILLIGRAM, 2/WEEK
     Route: 042
     Dates: start: 20210811
  13. TEDUGLUTIDE [Concomitant]
     Active Substance: TEDUGLUTIDE
     Indication: Product used for unknown indication
     Dosage: 0.30 MILLIGRAM, BID
     Route: 058
     Dates: start: 20150724, end: 20210810
  14. TEDUGLUTIDE [Concomitant]
     Active Substance: TEDUGLUTIDE
     Dosage: 0.30 MILLIGRAM, BID
     Route: 058
     Dates: start: 20210810
  15. ASPIRIN [Concomitant]
     Active Substance: ASPIRIN
     Indication: Large intestinal stenosis
     Dosage: 100 MILLIGRAM, QD
     Route: 048
     Dates: start: 20210615, end: 20210901
  16. EFEROX [Concomitant]
     Active Substance: LEVOTHYROXINE SODIUM
     Indication: Hypothyroidism
     Dosage: 50 MICROGRAM, QD
     Route: 048
     Dates: start: 2009
  17. TACROLIMUS [Concomitant]
     Active Substance: TACROLIMUS
     Indication: Immunosuppression
     Dosage: 3.8 MILLIGRAM, TID
     Route: 048
     Dates: start: 2014
  18. URSODIOL [Concomitant]
     Active Substance: URSODIOL
     Indication: Bile duct necrosis
     Dosage: 500 MILLIGRAM, BID
     Route: 048
     Dates: start: 20210223
  19. ERYTHROPOIETIN [Concomitant]
     Active Substance: ERYTHROPOIETIN
     Indication: Dialysis related complication
     Dosage: 5000 INTERNATIONAL UNIT, 3/WEEK
     Route: 058
     Dates: start: 20210223
  20. CHOLECALCIFEROL [Concomitant]
     Active Substance: CHOLECALCIFEROL
     Indication: Vitamin D deficiency
     Dosage: 20000 INTERNATIONAL UNIT
     Route: 048
     Dates: start: 20210223
  21. FERLECIT [Concomitant]
     Indication: Iron deficiency
     Dosage: 9 MILLIGRAM
     Route: 048
     Dates: start: 20210223
  22. ALFACALCIDOL [Concomitant]
     Active Substance: ALFACALCIDOL
     Indication: Osteoporosis
     Dosage: 5 GTT DROPS, QD
     Route: 048
     Dates: start: 20210223

REACTIONS (2)
  - Endometrial cancer [Recovered/Resolved with Sequelae]
  - Vaginal cancer [Recovered/Resolved with Sequelae]

NARRATIVE: CASE EVENT DATE: 20211208
